FAERS Safety Report 13990259 (Version 2)
Quarter: 2017Q4

REPORT INFORMATION
  Report Type: Spontaneous
  Country: US (occurrence: US)
  Receive Date: 20170920
  Receipt Date: 20171206
  Transmission Date: 20180321
  Serious: No
  Sender: FDA-Public Use
  Company Number: PHEH2017US029159

PATIENT
  Sex: Female

DRUGS (1)
  1. VIVELLE-DOT [Suspect]
     Active Substance: ESTRADIOL
     Indication: PRODUCT USED FOR UNKNOWN INDICATION
     Dosage: 0.1 MG, UNK
     Route: 062
     Dates: end: 20170907

REACTIONS (12)
  - Application site pain [Not Recovered/Not Resolved]
  - Application site erythema [Unknown]
  - Rash [Unknown]
  - Application site discomfort [Unknown]
  - Drug intolerance [Unknown]
  - Application site haemorrhage [Not Recovered/Not Resolved]
  - Application site vesicles [Unknown]
  - Hypersensitivity [Unknown]
  - Application site burn [Unknown]
  - Application site pruritus [Not Recovered/Not Resolved]
  - Application site irritation [Unknown]
  - Application site exfoliation [Not Recovered/Not Resolved]
